FAERS Safety Report 5923715-2 (Version None)
Quarter: 2008Q4

REPORT INFORMATION
  Report Type: 
  Country: None (occurrence: None)
  Receive Date: 20081020
  Receipt Date: 20081015
  Transmission Date: 20090506
  Serious: Yes (Hospitalization)
  Sender: FDA-Public Use
  Company Number: B0514908A

PATIENT
  Age: 64 Year
  Sex: Female
  Weight: 57 kg

DRUGS (2)
  1. LAPATINIB [Suspect]
     Dosage: 1250MG PER DAY
     Route: 048
     Dates: start: 20070913, end: 20080318
  2. CAPECITABINE [Suspect]
     Dosage: 3000MG PER DAY
     Route: 048
     Dates: start: 20080226, end: 20080310

REACTIONS (3)
  - ERYSIPELAS [None]
  - INFECTION [None]
  - PALMAR-PLANTAR ERYTHRODYSAESTHESIA SYNDROME [None]
